FAERS Safety Report 6248766-2 (Version None)
Quarter: 2009Q2

REPORT INFORMATION
  Report Type: 
  Country: None (occurrence: None)
  Receive Date: 20090625
  Receipt Date: 20090625
  Transmission Date: 20091009
  Serious: No
  Sender: FDA-Public Use
  Company Number: 1022556-2009-00031

PATIENT

DRUGS (1)
  1. ICY HOT [Suspect]

REACTIONS (1)
  - PRODUCT LABEL ON WRONG PRODUCT [None]
